FAERS Safety Report 13064338 (Version 1)
Quarter: 2016Q4

REPORT INFORMATION
  Report Type: Spontaneous
  Country: US (occurrence: US)
  Receive Date: 20161224
  Receipt Date: 20161224
  Transmission Date: 20170207
  Serious: Yes (Other)
  Sender: FDA-Public Use
  Company Number: None

PATIENT
  Age: 18 Year
  Sex: Male
  Weight: 74.25 kg

DRUGS (4)
  1. PROBIOTIC SUPPLEMENT [Concomitant]
  2. CLOMIPRAMINE HYDROCHLORIDE. [Suspect]
     Active Substance: CLOMIPRAMINE HYDROCHLORIDE
     Indication: OBSESSIVE-COMPULSIVE DISORDER
     Dosage: ?          QUANTITY:2 CAPSULE(S);?
     Route: 048
     Dates: start: 20161012, end: 20161223
  3. DEXTROAMPHET SACCHARAT, AMPHET ASPARTATE, DEXTROAMPHET SULFATE AND AMPHET SULFAT [Concomitant]
     Active Substance: AMPHETAMINE ASPARTATE\AMPHETAMINE SULFATE\DEXTROAMPHETAMINE SACCHARATE\DEXTROAMPHETAMINE SULFATE
  4. BETHANECHOL [Concomitant]
     Active Substance: BETHANECHOL

REACTIONS (7)
  - Throat irritation [None]
  - Pharyngeal oedema [None]
  - Chemical injury [None]
  - Retching [None]
  - Product physical issue [None]
  - Sneezing [None]
  - Salivary hypersecretion [None]

NARRATIVE: CASE EVENT DATE: 20161223
